FAERS Safety Report 10763544 (Version 1)
Quarter: 2015Q1

REPORT INFORMATION
  Report Type: Spontaneous
  Country: US (occurrence: None)
  Receive Date: 20150129
  Receipt Date: 20150129
  Transmission Date: 20150721
  Serious: Yes (Other)
  Sender: FDA-Public Use
  Company Number: 2014014153

PATIENT
  Age: 14 Year
  Sex: Male

DRUGS (4)
  1. PROZAC [Concomitant]
     Active Substance: FLUOXETINE HYDROCHLORIDE
  2. ZARONTIN (ETHOSUXIMIDE) [Concomitant]
  3. LAMICTAL [Concomitant]
     Active Substance: LAMOTRIGINE
  4. KEPPRA [Suspect]
     Active Substance: LEVETIRACETAM
     Indication: PRODUCT USED FOR UNKNOWN INDICATION

REACTIONS (4)
  - Generalised tonic-clonic seizure [None]
  - Depression [None]
  - Fatigue [None]
  - Mood swings [None]
